FAERS Safety Report 17498317 (Version 2)
Quarter: 2020Q2

REPORT INFORMATION
  Report Type: Report from Study
  Country: US (occurrence: US)
  Receive Date: 20200304
  Receipt Date: 20200429
  Transmission Date: 20200713
  Serious: No
  Sender: FDA-Public Use
  Company Number: NVSC2020US061094

PATIENT
  Sex: Female

DRUGS (1)
  1. MAYZENT [Suspect]
     Active Substance: SIPONIMOD
     Indication: PRODUCT USED FOR UNKNOWN INDICATION
     Dosage: 2 MG, QD
     Route: 048
     Dates: start: 20200207

REACTIONS (5)
  - Dizziness [Recovering/Resolving]
  - Memory impairment [Unknown]
  - Depression [Unknown]
  - Dyspnoea exertional [Unknown]
  - Somnolence [Recovering/Resolving]
